FAERS Safety Report 17517603 (Version 1)
Quarter: 2020Q1

REPORT INFORMATION
  Report Type: Spontaneous
  Country: US (occurrence: US)
  Receive Date: 20200309
  Receipt Date: 20200309
  Transmission Date: 20200409
  Serious: Yes (Other)
  Sender: FDA-Public Use
  Company Number: NVSC2020US066144

PATIENT
  Age: 53 Year
  Sex: Male

DRUGS (1)
  1. BEOVU [Suspect]
     Active Substance: BROLUCIZUMAB-DBLL
     Indication: NEOVASCULAR AGE-RELATED MACULAR DEGENERATION
     Dosage: 1 MG, QMO
     Route: 050
     Dates: start: 20200120, end: 20200120

REACTIONS (1)
  - Vitritis [Recovering/Resolving]

NARRATIVE: CASE EVENT DATE: 20200120
